FAERS Safety Report 9805411 (Version 1)
Quarter: 2014Q1

REPORT INFORMATION
  Report Type: Spontaneous
  Country: US (occurrence: None)
  Receive Date: 20140108
  Receipt Date: 20140108
  Transmission Date: 20141002
  Serious: Yes (Disabling)
  Sender: FDA-Public Use
  Company Number: None

PATIENT
  Age: 63 Year
  Sex: Female
  Weight: 52.16 kg

DRUGS (1)
  1. DULOXETINE DELAYED-RELEASE [Suspect]
     Indication: DEPRESSION
     Dosage: 1 PILL
     Route: 048
     Dates: start: 20131214, end: 20131230

REACTIONS (9)
  - Urine output decreased [None]
  - Hypoaesthesia [None]
  - Burning sensation [None]
  - Migraine [None]
  - Drug ineffective [None]
  - Weight increased [None]
  - Feeling abnormal [None]
  - Lethargy [None]
  - Feeling abnormal [None]
